FAERS Safety Report 20144613 (Version 5)
Quarter: 2022Q1

REPORT INFORMATION
  Report Type: Report from Study
  Country: CN (occurrence: CN)
  Receive Date: 20211203
  Receipt Date: 20220117
  Transmission Date: 20220423
  Serious: Yes (Hospitalization)
  Sender: FDA-Public Use
  Company Number: CN-GLAXOSMITHKLINE-CN2021GSK245839

PATIENT
  Age: 63 Year
  Sex: Female
  Weight: 42 kg

DRUGS (19)
  1. NIRAPARIB [Suspect]
     Active Substance: NIRAPARIB
     Indication: Neoplasm
     Dosage: 200 MG, QD
     Route: 048
     Dates: start: 20211027, end: 20211109
  2. NIRAPARIB [Suspect]
     Active Substance: NIRAPARIB
     Indication: Gastric cancer
  3. TEBOTELIMAB [Suspect]
     Active Substance: TEBOTELIMAB
     Indication: Gastric cancer
     Dosage: 600 MG, Z-EVERY 2 WEEKS
     Route: 042
     Dates: start: 20211027, end: 20211027
  4. TEBOTELIMAB [Suspect]
     Active Substance: TEBOTELIMAB
     Indication: Neoplasm
     Dosage: 600 MG, Z-EVERY 2 WEEKS
     Route: 042
     Dates: start: 20211110, end: 20211110
  5. MORPHINE SULFATE [Concomitant]
     Active Substance: MORPHINE SULFATE
     Dosage: UNK
     Route: 048
     Dates: start: 20211109
  6. ALBUMIN HUMAN [Concomitant]
     Active Substance: ALBUMIN HUMAN
     Dosage: UNK
     Dates: start: 20211109, end: 20211111
  7. DEXTROSE [Concomitant]
     Active Substance: DEXTROSE
     Dosage: UNK
     Dates: start: 20211109, end: 20211111
  8. LACTATED RINGERS SOLUTION [Concomitant]
     Active Substance: CALCIUM CHLORIDE\POTASSIUM CHLORIDE\SODIUM CHLORIDE\SODIUM LACTATE
     Indication: Malnutrition
     Dosage: UNK
     Dates: start: 20211111, end: 20211111
  9. MORPHINE SULFATE SUSTAINED-RELEASE TABLETS [Concomitant]
     Indication: Tumour pain
     Dosage: 150 MG, BID
     Dates: start: 20211109
  10. TAURINE [Concomitant]
     Active Substance: TAURINE
     Indication: Stomatitis
     Dosage: 10 ML, TID
     Route: 048
     Dates: start: 20211109
  11. HUMAN ALBUMIN INJECTION [Concomitant]
     Indication: Hypoalbuminaemia
     Dosage: 20 G, QD
     Route: 042
     Dates: start: 20211109, end: 20211111
  12. XYLITOL [Concomitant]
     Active Substance: XYLITOL
     Indication: Malnutrition
     Dosage: 250 ML, QD
     Route: 042
     Dates: start: 20211109, end: 20211111
  13. DEXTROSE [Concomitant]
     Active Substance: DEXTROSE
     Indication: Malnutrition
     Dosage: 250 ML, QD
     Route: 042
     Dates: start: 20211109, end: 20211111
  14. LACTATED RINGERS SOLUTION [Concomitant]
     Active Substance: CALCIUM CHLORIDE\POTASSIUM CHLORIDE\SODIUM CHLORIDE\SODIUM LACTATE
     Dosage: 500 ML, QD
     Route: 042
     Dates: start: 20211111, end: 20211111
  15. ACETAMINOPHEN\OXYCODONE HYDROCHLORIDE [Concomitant]
     Active Substance: ACETAMINOPHEN\OXYCODONE HYDROCHLORIDE
     Indication: Tumour pain
     Dosage: UNK
  16. LACTULOSE [Concomitant]
     Active Substance: LACTULOSE
     Indication: Constipation
     Dosage: UNK
  17. FAMOTIDINE FOR INJECTION [Concomitant]
     Indication: Abdominal discomfort
     Dosage: UNK
  18. CAPECITABINE [Concomitant]
     Active Substance: CAPECITABINE
     Indication: Neoplasm
     Dosage: UNK
     Dates: start: 20210917, end: 20211011
  19. APATINIB [Concomitant]
     Active Substance: APATINIB
     Indication: Neoplasm
     Dosage: UNK
     Dates: start: 20210803, end: 20211011

REACTIONS (1)
  - Pneumonia [Recovering/Resolving]

NARRATIVE: CASE EVENT DATE: 20211119
